FAERS Safety Report 12803406 (Version 1)
Quarter: 2016Q4

REPORT INFORMATION
  Report Type: Spontaneous
  Country: US (occurrence: US)
  Receive Date: 20161003
  Receipt Date: 20161003
  Transmission Date: 20170207
  Serious: No
  Sender: FDA-Public Use
  Company Number: US-BAYER-2016-181781

PATIENT
  Age: 49 Year
  Sex: Female

DRUGS (2)
  1. CLARITIN REDITABS [Suspect]
     Active Substance: LORATADINE
     Indication: NASAL CONGESTION
     Dosage: 2 DF, 1 AT 7:00 AND OTHER AT 7:30
     Route: 048
     Dates: start: 20160916, end: 20160916
  2. CLARITIN REDITABS [Suspect]
     Active Substance: LORATADINE
     Indication: NASAL CONGESTION
     Dosage: 1 DF, PRN (EVERY 24 HOURS AS NEEDED)
     Route: 048
     Dates: start: 201609

REACTIONS (1)
  - Extra dose administered [None]

NARRATIVE: CASE EVENT DATE: 20160916
